FAERS Safety Report 10081332 (Version 1)
Quarter: 2014Q2

REPORT INFORMATION
  Report Type: Report from Study
  Country: HU (occurrence: HU)
  Receive Date: 20140416
  Receipt Date: 20140416
  Transmission Date: 20141212
  Serious: Yes (Hospitalization)
  Sender: FDA-Public Use
  Company Number: HU-ASTRAZENECA-2014SE24879

PATIENT
  Age: 59 Year
  Sex: Male

DRUGS (1)
  1. SYMBICORT [Suspect]
     Indication: CHRONIC OBSTRUCTIVE PULMONARY DISEASE
     Dosage: 9/320 MCG, BID
     Route: 055
     Dates: start: 201403

REACTIONS (5)
  - Blood glucose decreased [Unknown]
  - Chills [Unknown]
  - Musculoskeletal stiffness [Unknown]
  - Blood pressure decreased [Unknown]
  - Dry mouth [Unknown]
